FAERS Safety Report 20912967 (Version 1)
Quarter: 2022Q2

REPORT INFORMATION
  Report Type: Spontaneous
  Country: US (occurrence: None)
  Receive Date: 20220603
  Receipt Date: 20220603
  Transmission Date: 20220721
  Serious: Yes (Hospitalization)
  Sender: FDA-Public Use
  Company Number: None

PATIENT
  Sex: Female

DRUGS (3)
  1. TADALAFIL [Suspect]
     Active Substance: TADALAFIL
     Indication: Pulmonary arterial hypertension
     Dosage: FREQUENCY : DAILY;?
     Route: 048
     Dates: start: 202103
  2. AMIODARONE [Suspect]
     Active Substance: AMIODARONE
  3. OPSUMIT [Suspect]
     Active Substance: MACITENTAN

REACTIONS (4)
  - Sepsis [None]
  - Hypoacusis [None]
  - Drug interaction [None]
  - Adverse drug reaction [None]
